FAERS Safety Report 11993898 (Version 2)
Quarter: 2016Q1

REPORT INFORMATION
  Report Type: Spontaneous
  Country: US (occurrence: US)
  Receive Date: 20160203
  Receipt Date: 20160302
  Transmission Date: 20160526
  Serious: No
  Sender: FDA-Public Use
  Company Number: US-MISSION PHARMACAL COMPANY-1047247

PATIENT
  Age: 31 Year
  Sex: Female

DRUGS (2)
  1. THIOLA [Suspect]
     Active Substance: TIOPRONIN
     Indication: CYSTINURIA
     Route: 065
     Dates: start: 20151013
  2. UROCIT-K [Concomitant]
     Active Substance: POTASSIUM CITRATE
     Route: 065
     Dates: start: 20151031

REACTIONS (1)
  - Renal stone removal [Unknown]

NARRATIVE: CASE EVENT DATE: 20151123
